FAERS Safety Report 7767097-2 (Version None)
Quarter: 2011Q3

REPORT INFORMATION
  Report Type: 
  Country: None (occurrence: None)
  Receive Date: 20110922
  Receipt Date: 20101101
  Transmission Date: 20111222
  Serious: No
  Sender: FDA-Public Use
  Company Number: US-ASTRAZENECA-2010SE28188

PATIENT
  Age: 62 Year
  Sex: Female
  Weight: 74.8 kg

DRUGS (7)
  1. NEXIUM [Concomitant]
     Route: 048
  2. SIMVASTATIN [Concomitant]
     Route: 065
  3. CLONAZEPAM [Concomitant]
     Route: 065
  4. SEROQUEL XR [Suspect]
     Indication: BIPOLAR I DISORDER
     Route: 048
     Dates: start: 20080101
  5. CARDIZEM CD [Concomitant]
     Route: 065
  6. LISINOPRIL [Concomitant]
     Route: 065
  7. LAMICTAL [Concomitant]
     Route: 065

REACTIONS (10)
  - ANKLE FRACTURE [None]
  - FEELING ABNORMAL [None]
  - CRYING [None]
  - DRUG DOSE OMISSION [None]
  - DYSSTASIA [None]
  - WITHDRAWAL SYNDROME [None]
  - DYSKINESIA [None]
  - PAIN IN EXTREMITY [None]
  - ANXIETY [None]
  - DIZZINESS [None]
